FAERS Safety Report 20038056 (Version 1)
Quarter: 2021Q4

REPORT INFORMATION
  Report Type: Spontaneous
  Country: US (occurrence: US)
  Receive Date: 20211105
  Receipt Date: 20211105
  Transmission Date: 20220303
  Serious: No
  Sender: FDA-Public Use
  Company Number: US-009507513-2111USA000650

PATIENT
  Age: 58 Year
  Sex: Female

DRUGS (1)
  1. INTEGRILIN [Suspect]
     Active Substance: EPTIFIBATIDE
     Indication: Thrombectomy
     Dosage: 180 MICROGRAM PER KILOGRAM, UNK
     Route: 042

REACTIONS (1)
  - Product use in unapproved indication [Unknown]
